FAERS Safety Report 18585763 (Version 1)
Quarter: 2020Q4

REPORT INFORMATION
  Report Type: Report from Study
  Country: DE (occurrence: DE)
  Receive Date: 20201207
  Receipt Date: 20201207
  Transmission Date: 20210114
  Serious: Yes (Death)
  Sender: FDA-Public Use
  Company Number: NVSC2020DE323335

PATIENT
  Sex: Female

DRUGS (6)
  1. KISQALI [Suspect]
     Active Substance: RIBOCICLIB
     Indication: BREAST CANCER METASTATIC
     Dosage: 600 MG (SCHEMA 21 DAYS INTAKE, 7 DAYS PAUSE)
     Route: 048
     Dates: start: 20180430, end: 20180527
  2. PALBOCICLIB [Concomitant]
     Active Substance: PALBOCICLIB
     Dosage: 75 MG, QD (SCHEMA 21 DAYS INTAKE, 7 DAYS PAUSE)
     Route: 048
     Dates: start: 20190204
  3. LETROZOLE. [Concomitant]
     Active Substance: LETROZOLE
     Indication: BREAST CANCER METASTATIC
     Dosage: 2.5 MG, QD
     Route: 048
     Dates: start: 20180430, end: 20180703
  4. PALBOCICLIB [Concomitant]
     Active Substance: PALBOCICLIB
     Indication: BREAST CANCER METASTATIC
     Dosage: 125 MG (SCHEMA 21 DAYS INTAKE, 7 DAYS PAUSE)
     Route: 048
     Dates: start: 20180822, end: 20181205
  5. KISQALI [Suspect]
     Active Substance: RIBOCICLIB
     Dosage: 600 MG (SCHEMA 21 DAYS INTAKE, 7 DAYS PAUSE)
     Route: 048
     Dates: start: 20180528, end: 20180703
  6. PALBOCICLIB [Concomitant]
     Active Substance: PALBOCICLIB
     Dosage: 100 MG, QD (SCHEMA 21 DAYS INTAKE, 7 DAYS PAUSE)
     Route: 048
     Dates: start: 20181231, end: 20190121

REACTIONS (1)
  - Death [Fatal]

NARRATIVE: CASE EVENT DATE: 20201031
